FAERS Safety Report 8032116-5 (Version None)
Quarter: 2012Q1

REPORT INFORMATION
  Report Type: 
  Country: None (occurrence: None)
  Receive Date: 20120109
  Receipt Date: 20120105
  Transmission Date: 20120608
  Serious: Yes (Life-Threatening)
  Sender: FDA-Public Use
  Company Number: FR-ASTRAZENECA-2012SE01056

PATIENT
  Age: 21450 Day
  Sex: Male

DRUGS (7)
  1. ASPIRIN [Concomitant]
     Route: 048
  2. CARBOCAINE [Suspect]
     Dosage: ONCE/SINGLE ADMINISTRATION
     Route: 052
     Dates: start: 20110509, end: 20110509
  3. MIDAZOLAM HCL [Suspect]
     Route: 042
     Dates: start: 20110509, end: 20110509
  4. PRAVASTATIN [Concomitant]
     Route: 048
  5. AUGMENTIN '125' [Suspect]
     Route: 042
     Dates: start: 20110509, end: 20110509
  6. SECTRAL [Concomitant]
     Route: 048
  7. OLMESARTAN MEDOXOMIL [Concomitant]
     Route: 048

REACTIONS (1)
  - ANAPHYLACTIC SHOCK [None]
